FAERS Safety Report 10069909 (Version 1)
Quarter: 2014Q2

REPORT INFORMATION
  Report Type: Spontaneous
  Country: CA (occurrence: CA)
  Receive Date: 20140410
  Receipt Date: 20140410
  Transmission Date: 20141212
  Serious: Yes (Hospitalization)
  Sender: FDA-Public Use
  Company Number: CA-AMGEN-CANSP2014024180

PATIENT
  Age: 86 Year
  Sex: Female

DRUGS (1)
  1. PROLIA [Suspect]
     Indication: OSTEOPOROSIS POSTMENOPAUSAL
     Dosage: 60 MG, Q6MO
     Route: 065
     Dates: start: 20140215

REACTIONS (2)
  - Diarrhoea [Recovered/Resolved]
  - Chest pain [Recovered/Resolved]
